FAERS Safety Report 24724085 (Version 2)
Quarter: 2025Q3

REPORT INFORMATION
  Report Type: Report from Study
  Country: SG (occurrence: SG)
  Receive Date: 20241211
  Receipt Date: 20250810
  Transmission Date: 20251021
  Serious: Yes (Death, Other)
  Sender: ALEXION PHARMACEUTICALS
  Company Number: SG-AstraZeneca-CH-00762719A

PATIENT
  Sex: Female

DRUGS (1)
  1. OSIMERTINIB [Suspect]
     Active Substance: OSIMERTINIB
     Indication: Non-small cell lung cancer
     Dosage: 80 MILLIGRAM, EVERY MORNING

REACTIONS (2)
  - Disease progression [Fatal]
  - Death [Fatal]

NARRATIVE: CASE EVENT DATE: 20240501
